FAERS Safety Report 15399876 (Version 1)
Quarter: 2018Q3

REPORT INFORMATION
  Report Type: Report from Study
  Country: ZA (occurrence: ZA)
  Receive Date: 20180919
  Receipt Date: 20180919
  Transmission Date: 20181010
  Serious: Yes (Death, Hospitalization)
  Sender: FDA-Public Use
  Company Number: PHHY2018ZA098773

PATIENT
  Age: 54 Year
  Sex: Female

DRUGS (1)
  1. GILENYA [Suspect]
     Active Substance: FINGOLIMOD HYDROCHLORIDE
     Indication: MULTIPLE SCLEROSIS
     Dosage: 0.5 MG, UNK
     Route: 048
     Dates: start: 20150915

REACTIONS (5)
  - Cerebrovascular accident [Fatal]
  - Cardiac arrest [Fatal]
  - Cerebral haemorrhage [Fatal]
  - Circulatory collapse [Fatal]
  - Coma [Fatal]

NARRATIVE: CASE EVENT DATE: 20180829
